FAERS Safety Report 4357974-7 (Version None)
Quarter: 2004Q2

REPORT INFORMATION
  Report Type: 
  Country: None (occurrence: None)
  Receive Date: 20040513
  Receipt Date: 20040513
  Transmission Date: 20050107
  Serious: Yes (Other)
  Sender: FDA-Public Use
  Company Number: None

PATIENT
  Age: 45 Year
  Sex: Female
  Weight: 49.8957 kg

DRUGS (1)
  1. LEVAQUIN [Suspect]
     Indication: DIVERTICULITIS
     Dosage: 500 MG 4 X PER DAY ORAL
     Route: 048
     Dates: start: 20040509, end: 20040512

REACTIONS (4)
  - ASTHENIA [None]
  - DIZZINESS [None]
  - HEART RATE IRREGULAR [None]
  - IMPAIRED DRIVING ABILITY [None]
